FAERS Safety Report 15793394 (Version 1)
Quarter: 2019Q1

REPORT INFORMATION
  Report Type: Spontaneous
  Country: MY (occurrence: MY)
  Receive Date: 20190107
  Receipt Date: 20190107
  Transmission Date: 20190417
  Serious: Yes (Other)
  Sender: FDA-Public Use
  Company Number: MY-MACLEODS PHARMACEUTICALS US LTD-MAC2018019462

PATIENT

DRUGS (1)
  1. TRIAMCINOLONE [Suspect]
     Active Substance: TRIAMCINOLONE
     Indication: DIABETIC RETINAL OEDEMA
     Dosage: UNK, INJECTION

REACTIONS (2)
  - Deposit eye [Recovering/Resolving]
  - Toxic anterior segment syndrome [Recovering/Resolving]
